FAERS Safety Report 6102183-4 (Version None)
Quarter: 2009Q1

REPORT INFORMATION
  Report Type: 
  Country: None (occurrence: None)
  Receive Date: 20090303
  Receipt Date: 20090303
  Transmission Date: 20090719
  Serious: Yes (Hospitalization)
  Sender: FDA-Public Use
  Company Number: None

PATIENT
  Age: 72 Year
  Sex: Female

DRUGS (1)
  1. DEXFERRUM [Suspect]
     Indication: IRON DEFICIENCY ANAEMIA
     Dosage: 500MG IV
     Route: 042
     Dates: start: 20081216, end: 20090109

REACTIONS (4)
  - ANAPHYLACTIC REACTION [None]
  - BLOOD POTASSIUM INCREASED [None]
  - HYPOKALAEMIA [None]
  - NO REACTION ON PREVIOUS EXPOSURE TO DRUG [None]
